FAERS Safety Report 15893430 (Version 1)
Quarter: 2019Q1

REPORT INFORMATION
  Report Type: Report from Study
  Country: None (occurrence: US)
  Receive Date: 20190130
  Receipt Date: 20190130
  Transmission Date: 20190417
  Serious: Yes (Hospitalization)
  Sender: FDA-Public Use
  Company Number: US-ABBVIE-19K-163-2638972-00

PATIENT
  Sex: Female

DRUGS (1)
  1. HUMIRA [Suspect]
     Active Substance: ADALIMUMAB
     Indication: RHEUMATOID ARTHRITIS
     Route: 058
     Dates: start: 20181024

REACTIONS (9)
  - Musculoskeletal stiffness [Recovering/Resolving]
  - Discomfort [Recovering/Resolving]
  - Pain [Recovering/Resolving]
  - Peripheral swelling [Recovering/Resolving]
  - Joint stiffness [Recovering/Resolving]
  - Pain in extremity [Recovering/Resolving]
  - Malaise [Not Recovered/Not Resolved]
  - Joint swelling [Recovering/Resolving]
  - Arthralgia [Recovering/Resolving]
